FAERS Safety Report 25908579 (Version 1)
Quarter: 2025Q4

REPORT INFORMATION
  Report Type: Spontaneous
  Country: US (occurrence: US)
  Receive Date: 20251010
  Receipt Date: 20251010
  Transmission Date: 20260117
  Serious: No
  Sender: MERCK SHARP & DOHME LLC
  Company Number: US-009507513-2330539

PATIENT
  Sex: Female

DRUGS (4)
  1. BELSOMRA [Suspect]
     Active Substance: SUVOREXANT
     Indication: Insomnia
     Dosage: STRENGTH: 3 MG
     Route: 048
     Dates: start: 2025, end: 2025
  2. BELSOMRA [Suspect]
     Active Substance: SUVOREXANT
     Indication: Insomnia
     Dosage: STRENGTH: 3 MG
     Route: 048
     Dates: start: 20250902, end: 202509
  3. BELSOMRA [Suspect]
     Active Substance: SUVOREXANT
     Indication: Insomnia
     Dosage: STRENGTH: 10 MG
     Route: 048
     Dates: start: 20250915
  4. LUNESTA [Concomitant]
     Active Substance: ESZOPICLONE

REACTIONS (5)
  - Diarrhoea [Not Recovered/Not Resolved]
  - Drug ineffective [Unknown]
  - Product prescribing error [Unknown]
  - Wrong strength [Unknown]
  - Incorrect dose administered [Unknown]

NARRATIVE: CASE EVENT DATE: 20250101
